FAERS Safety Report 8141683-2 (Version None)
Quarter: 2012Q1

REPORT INFORMATION
  Report Type: 
  Country: None (occurrence: None)
  Receive Date: 20120216
  Receipt Date: 20120209
  Transmission Date: 20120608
  Serious: Yes (Hospitalization, Disabling)
  Sender: FDA-Public Use
  Company Number: PHHY2012CA002816

PATIENT
  Sex: Female

DRUGS (7)
  1. ATENOLOL [Concomitant]
     Dosage: 8 MG, UNK
  2. ZOLEDRONOC ACID [Suspect]
     Dosage: UNK UKN, ANNUALLY
     Route: 042
     Dates: start: 20101203
  3. ZOLEDRONOC ACID [Suspect]
     Dosage: UNK UKN, ANNUALLY
     Route: 042
     Dates: start: 20111202
  4. INDAPAMIDE [Concomitant]
     Dosage: UNK UKN, UNK
  5. CALCIUM [Concomitant]
     Dosage: UNK UKN, UNK
  6. ZOLEDRONOC ACID [Suspect]
     Indication: OSTEOPOROSIS
     Dosage: UNK UKN, ANNUALLY
     Route: 042
     Dates: start: 20091127
  7. CRESTOR [Concomitant]
     Dosage: UNK UKN, UNK

REACTIONS (2)
  - CEREBROVASCULAR ACCIDENT [None]
  - PERONEAL NERVE PALSY [None]
